FAERS Safety Report 9786991 (Version 2)
Quarter: 2014Q1

REPORT INFORMATION
  Report Type: Spontaneous
  Country: US (occurrence: US)
  Receive Date: 20131227
  Receipt Date: 20140204
  Transmission Date: 20141002
  Serious: Yes (Other)
  Sender: FDA-Public Use
  Company Number: CHPA2013US018815

PATIENT
  Age: 72 Year
  Sex: Female

DRUGS (3)
  1. VOLTAREN GEL [Suspect]
     Indication: ARTHRITIS
     Dosage: PENNY SIZED AMOUNT, AS NEEDED
     Route: 061
     Dates: end: 2013
  2. VOLTAREN GEL [Suspect]
     Indication: MUSCLE DISORDER
     Dosage: PENNY SIZED AMOUNT, AS NEEDED
     Route: 061
     Dates: start: 20131220
  3. VOLTAREN GEL [Suspect]
     Indication: OFF LABEL USE

REACTIONS (3)
  - Gastroenteritis viral [Not Recovered/Not Resolved]
  - Wrong technique in drug usage process [Unknown]
  - Therapeutic response unexpected [Unknown]
